FAERS Safety Report 21169029 (Version 3)
Quarter: 2022Q3

REPORT INFORMATION
  Report Type: Spontaneous
  Country: JP (occurrence: JP)
  Receive Date: 20220803
  Receipt Date: 20220914
  Transmission Date: 20221026
  Serious: Yes (Hospitalization)
  Sender: FDA-Public Use
  Company Number: JP-BRISTOL-MYERS SQUIBB COMPANY-BMS-2021-131277

PATIENT
  Age: 63 Year
  Sex: Female
  Weight: 46 kg

DRUGS (11)
  1. YERVOY [Suspect]
     Active Substance: IPILIMUMAB
     Indication: Non-small cell lung cancer recurrent
     Dosage: 46 MG (1MG/KG), Q6W
     Route: 041
     Dates: start: 20211001, end: 20211001
  2. YERVOY [Suspect]
     Active Substance: IPILIMUMAB
     Indication: Non-small cell lung cancer
  3. OPDIVO [Suspect]
     Active Substance: NIVOLUMAB
     Indication: Non-small cell lung cancer
     Route: 041
     Dates: start: 20211001, end: 20211001
  4. COMIRNATY [Concomitant]
     Active Substance: TOZINAMERAN
     Dosage: UNK
     Route: 065
     Dates: end: 20220309
  5. COMIRNATY [Concomitant]
     Active Substance: TOZINAMERAN
  6. PEMETREXED [Concomitant]
     Active Substance: PEMETREXED
     Indication: Non-small cell lung cancer
     Route: 041
     Dates: start: 20211001, end: 20211001
  7. CARBOPLATIN [Concomitant]
     Active Substance: CARBOPLATIN
     Indication: Non-small cell lung cancer
     Route: 041
     Dates: start: 20211001, end: 20211001
  8. METHYLCOBALAMIN [Concomitant]
     Active Substance: METHYLCOBALAMIN
     Indication: Chemotherapy side effect prophylaxis
     Dosage: 1 MG, Q9W
     Route: 030
     Dates: start: 20210917, end: 20210917
  9. METHYLCOBALAMIN [Concomitant]
     Active Substance: METHYLCOBALAMIN
     Indication: Prophylaxis
  10. PEMETREXED [Concomitant]
     Active Substance: PEMETREXED
     Indication: Non-small cell lung cancer recurrent
     Dosage: 720 MG (500MG/M2), Q3W
     Route: 041
     Dates: start: 20211001, end: 20211001
  11. VITAMINS [Concomitant]
     Active Substance: VITAMINS
     Indication: Prophylaxis
     Dosage: 1 G, EVERYDAY
     Route: 048
     Dates: start: 20210917, end: 20211027

REACTIONS (4)
  - Rash [Recovering/Resolving]
  - Liver disorder [Recovering/Resolving]
  - Pyrexia [Recovered/Resolved]
  - Amylase increased [Recovered/Resolved]

NARRATIVE: CASE EVENT DATE: 20211005
